FAERS Safety Report 5885176-1 (Version None)
Quarter: 2008Q3

REPORT INFORMATION
  Report Type: 
  Country: None (occurrence: None)
  Receive Date: 20080916
  Receipt Date: 20080904
  Transmission Date: 20090109
  Serious: Yes (Hospitalization)
  Sender: FDA-Public Use
  Company Number: PHEH1996US07345

PATIENT
  Sex: Male
  Weight: 78.7 kg

DRUGS (3)
  1. NEORAL [Suspect]
     Route: 048
     Dates: start: 19950223, end: 19950324
  2. IMURAN [Concomitant]
     Dosage: UNSPECIFIED
     Route: 065
  3. PREDNISONE TAB [Concomitant]
     Dosage: UNSPECIFIED
     Route: 065

REACTIONS (3)
  - BLOOD CREATININE INCREASED [None]
  - BLOOD POTASSIUM INCREASED [None]
  - TRANSPLANT REJECTION [None]
